FAERS Safety Report 25102242 (Version 1)
Quarter: 2025Q1

REPORT INFORMATION
  Report Type: Spontaneous
  Country: US (occurrence: US)
  Receive Date: 20250320
  Receipt Date: 20250320
  Transmission Date: 20250408
  Serious: Yes (Hospitalization, Other)
  Sender: JOHNSON AND JOHNSON
  Company Number: US-JNJFOC-20250331486

PATIENT
  Age: 18 Year

DRUGS (4)
  1. INVEGA SUSTENNA [Suspect]
     Active Substance: PALIPERIDONE PALMITATE
     Indication: Product used for unknown indication
  2. INVEGA SUSTENNA [Suspect]
     Active Substance: PALIPERIDONE PALMITATE
  3. INVEGA SUSTENNA [Suspect]
     Active Substance: PALIPERIDONE PALMITATE
  4. BENZTROPINE [Concomitant]
     Active Substance: BENZTROPINE

REACTIONS (13)
  - Hospitalisation [Unknown]
  - Haematochezia [Unknown]
  - Gait disturbance [Unknown]
  - Musculoskeletal stiffness [Unknown]
  - Tremor [Unknown]
  - Joint stiffness [Unknown]
  - Eyelid ptosis [Unknown]
  - Crying [Unknown]
  - Anxiety [Unknown]
  - Diarrhoea [Unknown]
  - Dehydration [Unknown]
  - Feeling hot [Unknown]
  - Product dose omission issue [Unknown]
